FAERS Safety Report 5521896-6 (Version None)
Quarter: 2007Q4

REPORT INFORMATION
  Report Type: 
  Country: None (occurrence: None)
  Receive Date: 20071120
  Receipt Date: 20071120
  Transmission Date: 20080405
  Serious: Yes (Death)
  Sender: FDA-Public Use
  Company Number: TR-ABBOTT-07P-161-0424038-00

PATIENT
  Age: 65 Year
  Sex: Female

DRUGS (1)
  1. TARKA FORTE [Suspect]
     Indication: HYPERTENSION

REACTIONS (2)
  - ATRIOVENTRICULAR BLOCK [None]
  - MYOCARDIAL ISCHAEMIA [None]
